FAERS Safety Report 7156710-9 (Version None)
Quarter: 2010Q4

REPORT INFORMATION
  Report Type: 
  Country: None (occurrence: None)
  Receive Date: 20101214
  Receipt Date: 20091202
  Transmission Date: 20110411
  Serious: No
  Sender: FDA-Public Use
  Company Number: US-ASTRAZENECA-2009SE29815

PATIENT
  Age: 26870 Day
  Sex: Male
  Weight: 64.4 kg

DRUGS (7)
  1. CRESTOR [Suspect]
     Dosage: 40 MG
     Route: 048
     Dates: start: 20091119, end: 20091126
  2. ASPIRIN [Concomitant]
  3. CYTOXAN [Concomitant]
     Indication: LUNG DISORDER
  4. LISINOPRIL [Concomitant]
     Indication: HYPERTENSION
  5. PLAVIX [Concomitant]
  6. NIASPAN [Concomitant]
  7. TRAVATAN [Concomitant]
     Indication: GLAUCOMA

REACTIONS (2)
  - HAEMORRHAGE URINARY TRACT [None]
  - MEDICATION ERROR [None]
